FAERS Safety Report 13720904 (Version 1)
Quarter: 2017Q3

REPORT INFORMATION
  Report Type: Spontaneous
  Country: US (occurrence: US)
  Receive Date: 20170705
  Receipt Date: 20170705
  Transmission Date: 20171127
  Serious: Yes (Other)
  Sender: FDA-Public Use
  Company Number: None

PATIENT
  Age: 84 Year
  Sex: Male
  Weight: 135 kg

DRUGS (10)
  1. SYNTHROID [Concomitant]
     Active Substance: LEVOTHYROXINE SODIUM
  2. VICTOZA [Concomitant]
     Active Substance: LIRAGLUTIDE
  3. CHLORTHORADONE [Concomitant]
  4. LANTUS [Concomitant]
     Active Substance: INSULIN GLARGINE
  5. COUMADIN [Concomitant]
     Active Substance: WARFARIN SODIUM
  6. MIRALA [Concomitant]
  7. CALCITROL [Concomitant]
     Active Substance: CALCITRIOL
  8. NOVOLOG [Suspect]
     Active Substance: INSULIN ASPART
     Indication: DIABETES MELLITUS
     Dosage: ?          OTHER STRENGTH:ML;?
     Route: 058
     Dates: start: 20170109
  9. PREDNISONE. [Concomitant]
     Active Substance: PREDNISONE
  10. ATORVASTATIN [Concomitant]
     Active Substance: ATORVASTATIN

REACTIONS (1)
  - Product label issue [None]

NARRATIVE: CASE EVENT DATE: 20170703
